FAERS Safety Report 4858162-8 (Version None)
Quarter: 2005Q4

REPORT INFORMATION
  Report Type: 
  Country: None (occurrence: None)
  Receive Date: 20051219
  Receipt Date: 20050317
  Transmission Date: 20060501
  Serious: No
  Sender: FDA-Public Use
  Company Number: US-GLAXOSMITHKLINE-A0550175A

PATIENT
  Age: 68 Year
  Sex: Female

DRUGS (2)
  1. AMERICAN FARE NTS, 21MG STEP 1 [Suspect]
  2. AMERICAN FARE NTS, 14MG STEP 2 [Suspect]

REACTIONS (3)
  - APPLICATION SITE ERYTHEMA [None]
  - APPLICATION SITE PRURITUS [None]
  - APPLICATION SITE SWELLING [None]
